FAERS Safety Report 9915847 (Version 2)
Quarter: 2014Q1

REPORT INFORMATION
  Report Type: Report from Study
  Country: US (occurrence: US)
  Receive Date: 20140221
  Receipt Date: 20140304
  Transmission Date: 20141002
  Serious: Yes (Other)
  Sender: FDA-Public Use
  Company Number: US-ROCHE-1135067

PATIENT
  Age: 74 Year
  Sex: Female

DRUGS (3)
  1. RANIBIZUMAB [Suspect]
     Indication: RETINAL VEIN OCCLUSION
     Route: 050
     Dates: start: 201006
  2. BEVACIZUMAB [Suspect]
     Indication: RETINAL VEIN OCCLUSION
     Route: 050
     Dates: start: 200909, end: 201003
  3. ACETAMINOPHEN [Concomitant]

REACTIONS (2)
  - Retinal oedema [Unknown]
  - Retinal haemorrhage [Unknown]
